FAERS Safety Report 7138706-6 (Version None)
Quarter: 2010Q4

REPORT INFORMATION
  Report Type: 
  Country: None (occurrence: None)
  Receive Date: 20101201
  Receipt Date: 20101201
  Transmission Date: 20110411
  Serious: Yes (Other)
  Sender: FDA-Public Use
  Company Number: None

PATIENT
  Sex: Male

DRUGS (1)
  1. SUTENT [Suspect]
     Indication: THYROID CANCER
     Dosage: 50MG QD X 28D OFF 14D PO
     Route: 048
     Dates: start: 20100910

REACTIONS (1)
  - PULMONARY HAEMORRHAGE [None]
